FAERS Safety Report 9224304 (Version 1)
Quarter: 2013Q1

REPORT INFORMATION
  Report Type: Spontaneous
  Country: US (occurrence: US)
  Receive Date: 20120914
  Receipt Date: 20120914
  Transmission Date: 20140127
  Serious: Yes (Other)
  Sender: FDA-Public Use
  Company Number: JPI-P-022348

PATIENT
  Age: 39 Year
  Sex: Female
  Weight: 72.58 kg

DRUGS (3)
  1. XYREM (500 MG/ML SOLUTION)(SODIUM OXYBATE) [Suspect]
     Indication: CATAPLEXY
     Dosage: 2 DOSES OF 2.25 GM TAKEN NIGHTLY/AT BEDTIME.
     Route: 048
     Dates: start: 20120615
  2. AMPHETAMINE ASPARTATE; AMPHETAMINE SULFATE; DEXTROAMPHETAMINE SACCHARATE; DEXTROAMPHETAMINE SULFATE [Concomitant]
  3. BISMUTH SUBSALICYLATE [Concomitant]

REACTIONS (4)
  - Weight decreased [None]
  - Adjustment disorder [None]
  - Hypersensitivity [None]
  - Ear discomfort [None]
